FAERS Safety Report 5146930-7 (Version None)
Quarter: 2006Q4

REPORT INFORMATION
  Report Type: 
  Country: None (occurrence: None)
  Receive Date: 20061109
  Receipt Date: 20061027
  Transmission Date: 20070319
  Serious: Yes (Hospitalization)
  Sender: FDA-Public Use
  Company Number: JP-NOVOPROD-258067

PATIENT
  Age: 54 Year
  Sex: Female
  Weight: 58 kg

DRUGS (2)
  1. NOVOMIX 70 FLEXPEN 3 ML NN2000 [Suspect]
     Indication: INSULIN-REQUIRING TYPE II DIABETES MELLITUS
     Dosage: 17 U, QD
     Route: 058
     Dates: start: 20060512, end: 20061027
  2. NOVOLOG MIX 70/30 [Suspect]
     Indication: INSULIN-REQUIRING TYPE II DIABETES MELLITUS
     Dosage: 14 U, QD
     Route: 058
     Dates: start: 20060901, end: 20061027

REACTIONS (1)
  - VENTRICULAR TACHYCARDIA [None]
